FAERS Safety Report 10387759 (Version 1)
Quarter: 2014Q1

REPORT INFORMATION
  Report Type: Spontaneous
  Country: US (occurrence: None)
  Receive Date: 20140306
  Receipt Date: 20140306
  Transmission Date: 20141002
  Serious: Yes (Other)
  Sender: FDA-Public Use
  Company Number: 163-21880-13080709

PATIENT
  Age: 72 Year
  Sex: Male
  Weight: 63.5 kg

DRUGS (13)
  1. REVLIMID (LENALIDOMIDE) (25 MILLIGRAM, CAPSULES) [Suspect]
     Indication: PLASMA CELL MYELOMA
     Dosage: 25 MG, 21 IN 21 D, PO
     Route: 048
     Dates: start: 20100710, end: 201009
  2. ACYCLOVIR (ACICLOVIR) (CAPSULES) [Concomitant]
  3. DEXAMETHASONE (DEXAMETHASONE) [Concomitant]
  4. MULTIVITAMINS (MULTIVITAMINS) [Concomitant]
  5. ZANTAC (RANITIDINE HYDROCHLORIDE) (CAPSULES) [Concomitant]
  6. ZOMETA (ZOLEDRONIC ACID) [Concomitant]
  7. BENADRYL (DIPHENHYDRAMINE) (CAPSULES) [Concomitant]
  8. FOLIC ACID(FOLIC ACID) [Concomitant]
  9. CALCIUM CARBONATE (CALCIUM CARBONATE) [Concomitant]
  10. ASA (ACETYLSALICYLIC ACID) [Concomitant]
  11. MVI (MVI) [Concomitant]
  12. PROBIOTIC (BIFIDOBACTERIUM LACTIS) [Concomitant]
  13. B12 (CYANOCOBALAMIN) [Concomitant]

REACTIONS (3)
  - Neuropathy peripheral [None]
  - Unevaluable event [None]
  - Insomnia [None]
